FAERS Safety Report 4943413-1 (Version None)
Quarter: 2006Q1

REPORT INFORMATION
  Report Type: 
  Country: None (occurrence: None)
  Receive Date: 20060309
  Receipt Date: 20060228
  Transmission Date: 20060701
  Serious: Yes (Hospitalization, Other)
  Sender: FDA-Public Use
  Company Number: 2006016168

PATIENT
  Sex: Female
  Weight: 86.1834 kg

DRUGS (1)
  1. BENADRYL ALLERGY/SINUS (DIPHENHYDRAMINE, PSEUDOEPHEDRINE) [Suspect]
     Indication: HYPERSENSITIVITY
     Dosage: ORAL
     Route: 048

REACTIONS (15)
  - CHEST PAIN [None]
  - COMPLICATED MIGRAINE [None]
  - CORRECTIVE LENS USER [None]
  - FEELING ABNORMAL [None]
  - FIBRIN D DIMER INCREASED [None]
  - HEART RATE INCREASED [None]
  - HEMIPARESIS [None]
  - HYPERTENSION [None]
  - HYPOAESTHESIA [None]
  - MALAISE [None]
  - MEAN CELL HAEMOGLOBIN DECREASED [None]
  - PARAESTHESIA [None]
  - RESPIRATORY RATE INCREASED [None]
  - SENSORY LOSS [None]
  - VISUAL ACUITY REDUCED [None]
